FAERS Safety Report 24170428 (Version 2)
Quarter: 2024Q4

REPORT INFORMATION
  Report Type: Spontaneous
  Country: US (occurrence: US)
  Receive Date: 20240803
  Receipt Date: 20241105
  Transmission Date: 20250115
  Serious: No
  Sender: GLAXOSMITHKLINE
  Company Number: US-GSK-US2024AMR093036

PATIENT
  Age: 34 Year
  Sex: Male
  Weight: 68 kg

DRUGS (8)
  1. WELLBUTRIN [Suspect]
     Active Substance: BUPROPION HYDROCHLORIDE
     Indication: Product used for unknown indication
     Dosage: 150 MG
  2. LUMRYZ [Suspect]
     Active Substance: SODIUM OXYBATE
     Indication: Narcolepsy
     Dosage: 4.5 G, QD NIGHTLY
     Route: 048
     Dates: start: 20240524
  3. LUMRYZ [Suspect]
     Active Substance: SODIUM OXYBATE
     Dosage: 6 MG, QD NIGHTLY
     Route: 048
     Dates: start: 20240530
  4. LUMRYZ [Suspect]
     Active Substance: SODIUM OXYBATE
     Dosage: 6 G, QD NIGHTLY
     Route: 048
     Dates: start: 2024
  5. LUMRYZ [Suspect]
     Active Substance: SODIUM OXYBATE
     Dosage: 7.5 G
     Route: 048
     Dates: start: 2024
  6. GINGER [Concomitant]
     Active Substance: GINGER
     Indication: Product used for unknown indication
     Dosage: UNK
  7. MODAFINIL [Concomitant]
     Active Substance: MODAFINIL
     Indication: Product used for unknown indication
     Dosage: 100 MG, QD
  8. ENTYVIO [Concomitant]
     Active Substance: VEDOLIZUMAB
     Indication: Product used for unknown indication
     Dosage: UNK

REACTIONS (15)
  - Dry eye [Recovering/Resolving]
  - Feeling abnormal [Recovered/Resolved]
  - Psychomotor hyperactivity [Recovered/Resolved]
  - Nausea [Recovered/Resolved]
  - Hyperhidrosis [Not Recovered/Not Resolved]
  - Anxiety [Recovered/Resolved]
  - Depressed mood [Recovered/Resolved]
  - Motion sickness [Unknown]
  - Condition aggravated [Recovering/Resolving]
  - Mania [Recovered/Resolved]
  - Confusional state [Recovered/Resolved]
  - Discomfort [Recovered/Resolved]
  - Sensory overload [Unknown]
  - Tremor [Recovering/Resolving]
  - Emotional disorder [Recovered/Resolved]

NARRATIVE: CASE EVENT DATE: 20240602
